FAERS Safety Report 21322036 (Version 1)
Quarter: 2022Q3

REPORT INFORMATION
  Report Type: Spontaneous
  Country: JP (occurrence: JP)
  Receive Date: 20220912
  Receipt Date: 20220912
  Transmission Date: 20221027
  Serious: Yes (Death)
  Sender: FDA-Public Use
  Company Number: JP-Eisai-202207518_HAL-STS_P_1

PATIENT
  Age: 54 Year
  Sex: Female

DRUGS (1)
  1. HALAVEN [Suspect]
     Active Substance: ERIBULIN MESYLATE
     Indication: Uterine leiomyosarcoma
     Dosage: DOSE UNKNOWN
     Route: 041

REACTIONS (3)
  - Tumour embolism [Fatal]
  - Anaemia [Recovering/Resolving]
  - Nausea [Recovering/Resolving]
